FAERS Safety Report 9294966 (Version 2)
Quarter: 2013Q3

REPORT INFORMATION
  Report Type: Spontaneous
  Country: US (occurrence: US)
  Receive Date: 20130517
  Receipt Date: 20130719
  Transmission Date: 20140515
  Serious: Yes (Hospitalization, Other)
  Sender: FDA-Public Use
  Company Number: PHEH2013US010747

PATIENT
  Sex: Male

DRUGS (1)
  1. CLOZARIL [Suspect]
     Dosage: UNK UKN, UNK

REACTIONS (5)
  - Burn infection [Unknown]
  - Self injurious behaviour [Recovered/Resolved]
  - Thermal burn [Recovered/Resolved]
  - Schizophrenia, paranoid type [Unknown]
  - Laboratory test abnormal [Unknown]
